FAERS Safety Report 7714789-7 (Version None)
Quarter: 2011Q3

REPORT INFORMATION
  Report Type: 
  Country: None (occurrence: None)
  Receive Date: 20110829
  Receipt Date: 20110818
  Transmission Date: 20111222
  Serious: Yes (Other)
  Sender: FDA-Public Use
  Company Number: HR-BAYER-2011-007487

PATIENT
  Sex: Female

DRUGS (1)
  1. YASMIN 0,03 MG/3 MG FILM COATED TABLETS [Suspect]
     Indication: CONTRACEPTION
     Dosage: UNK
     Route: 048
     Dates: start: 20091001

REACTIONS (1)
  - TREMOR [None]
